FAERS Safety Report 9124430 (Version 3)
Quarter: 2013Q2

REPORT INFORMATION
  Report Type: Spontaneous
  Country: DE (occurrence: DE)
  Receive Date: 20130116
  Receipt Date: 20130506
  Transmission Date: 20140414
  Serious: Yes (Other)
  Sender: FDA-Public Use
  Company Number: DE-AMGEN-DEUSP2013001703

PATIENT
  Sex: Female
  Weight: 70 kg

DRUGS (2)
  1. XGEVA [Suspect]
     Indication: BREAST CANCER
     Dosage: 120 MG, Q4WK
     Route: 058
     Dates: start: 20120328, end: 20121016
  2. XELODA [Concomitant]
     Indication: METASTASIS
     Dosage: 2000 MG, BID
     Route: 048
     Dates: start: 201104

REACTIONS (4)
  - Osteonecrosis of jaw [Unknown]
  - Tooth disorder [Unknown]
  - Impaired healing [Unknown]
  - Soft tissue disorder [Recovering/Resolving]
